FAERS Safety Report 8376654-4 (Version None)
Quarter: 2012Q2

REPORT INFORMATION
  Report Type: 
  Country: None (occurrence: None)
  Receive Date: 20120518
  Receipt Date: 20120504
  Transmission Date: 20120825
  Serious: Yes (Death)
  Sender: FDA-Public Use
  Company Number: COM-000200

PATIENT
  Sex: Female
  Weight: 40.8237 kg

DRUGS (4)
  1. MORPHINE SULFATE [Concomitant]
  2. XANAX [Concomitant]
  3. DOCUSATE SODIUM 100MG SOFTGEL / BANNER [Suspect]
     Indication: GASTROINTESTINAL MOTILITY DISORDER
     Dosage: 200MG,ONCE, ORALLY
     Route: 048
     Dates: start: 20120324
  4. DIGOXIN [Concomitant]

REACTIONS (3)
  - ORAL DISORDER [None]
  - WRONG TECHNIQUE IN DRUG USAGE PROCESS [None]
  - DYSPNOEA [None]
